FAERS Safety Report 9013438 (Version 4)
Quarter: 2013Q4

REPORT INFORMATION
  Report Type: Spontaneous
  Country: US (occurrence: US)
  Receive Date: 20130114
  Receipt Date: 20131220
  Transmission Date: 20140711
  Serious: Yes (Hospitalization, Disabling, Other)
  Sender: FDA-Public Use
  Company Number: US-009507513-1301USA005211

PATIENT
  Sex: Female
  Weight: 83.9 kg

DRUGS (2)
  1. NUVARING [Suspect]
     Indication: CONTRACEPTION
     Dosage: UNK
     Route: 067
     Dates: start: 2005, end: 200908
  2. ULTRAM [Suspect]
     Indication: PAIN
     Dosage: UNK
     Dates: start: 20090830

REACTIONS (8)
  - Pulmonary embolism [Recovering/Resolving]
  - Coagulopathy [Unknown]
  - Local swelling [Unknown]
  - Appendicectomy [Unknown]
  - Pneumonia [Recovering/Resolving]
  - Constipation [Recovering/Resolving]
  - Nausea [Recovering/Resolving]
  - Vomiting [Recovering/Resolving]
